FAERS Safety Report 15595624 (Version 2)
Quarter: 2018Q4

REPORT INFORMATION
  Report Type: Spontaneous
  Country: US (occurrence: US)
  Receive Date: 20181107
  Receipt Date: 20181114
  Transmission Date: 20190205
  Serious: No
  Sender: FDA-Public Use
  Company Number: US-TEVA-2018-US-973360

PATIENT
  Sex: Female

DRUGS (8)
  1. AUSTEDO [Suspect]
     Active Substance: DEUTETRABENAZINE
     Indication: MOVEMENT DISORDER
     Route: 048
     Dates: start: 20180912
  2. BENZTROPINE MESYLATE - 0.5 MG [Concomitant]
  3. DIVALPROEX SODIUM ER - 250 MG [Concomitant]
  4. SE-NATAL 19 [Concomitant]
     Active Substance: .ALPHA.-TOCOPHEROL ACETATE, DL-\.BETA.-CAROTENE\ASCORBIC ACID\CALCIUM CARBONATE\CALCIUM PANTOTHENATE\CHOLECALCIFEROL\CYANOCOBALAMIN\DOCUSATE SODIUM\FERROUS FUMARATE\FOLIC ACID\NIACINAMIDE\PYRIDOXINE HYDROCHLORIDE\RIBOFLAVIN\THIAMINE MONONITRATE\ZINC OXIDE
  5. LISINOPRIL - 5 MG [Concomitant]
  6. PRIMIDONE - 50 MG [Concomitant]
  7. AMLODIPINE BESYLATE - 5 MG [Concomitant]
  8. PROAIR HFA - 90 MCG [Concomitant]

REACTIONS (3)
  - Product used for unknown indication [Unknown]
  - Palpitations [Unknown]
  - Hyperhidrosis [Unknown]
